FAERS Safety Report 6660798-9 (Version None)
Quarter: 2010Q1

REPORT INFORMATION
  Report Type: 
  Country: None (occurrence: None)
  Receive Date: 20100331
  Receipt Date: 20100323
  Transmission Date: 20100710
  Serious: Yes (Other)
  Sender: FDA-Public Use
  Company Number: IL-ROCHE-686520

PATIENT
  Sex: Female
  Weight: 79 kg

DRUGS (13)
  1. TOCILIZUMAB [Suspect]
     Indication: RHEUMATOID ARTHRITIS
     Dosage: FORM: INFUSION SOLUTION LAST DOSE PRIOR TO SAE: 21 JAN 2010
     Route: 042
     Dates: start: 20060109, end: 20100215
  2. BLINDED TOCILIZUMAB [Suspect]
     Indication: RHEUMATOID ARTHRITIS
     Dosage: DOSE BLINDED. AS PER PROTOCOL THE PATIENT WAS PREVIOUSLY ENROLLED IN BLINDED STUDY WA17822.
     Route: 042
  3. METHOTREXATE [Concomitant]
     Dosage: TOTAL DAILY DOSE REPORTED AS 15 MG PER WEEK
     Dates: start: 20060517, end: 20100228
  4. METHOTREXATE [Concomitant]
     Dosage: TOTAL DAILY DOSE REPORTED AS 15 MG PER WEEK
     Dates: start: 20100314
  5. FOLIC ACID [Concomitant]
     Dosage: START DATE: PREVIOUS,TOTAL DAILY DOSE REPORTED AS 05 MG PER WEEK
  6. CALCIUM CARBONATE/VITAMIN D3 [Concomitant]
     Dosage: START DATE REPORTED AS PREVIOUS.
  7. OMEPRAZOLE [Concomitant]
     Dosage: START DATE REPORTED AS PREVIOUS.
  8. DILTIAZEM HCL [Concomitant]
     Dosage: START DATE REPORTED AS PREVIOUS.
  9. LYTEERS [Concomitant]
     Dosage: START DATE REPORTED AS PREVIOUS, TOTAL DAILY DOSE: 3 GTT
  10. FLUTICASONE PROPIONATE [Concomitant]
     Dosage: REPORTED AS: ONE PUFF AS REQUIRED
     Dates: start: 20070503
  11. DESLORATADINE [Concomitant]
     Dates: start: 20070503
  12. PREDNISOLONE [Concomitant]
     Dates: start: 20091001
  13. VITAMINE D [Concomitant]
     Dosage: TOTAL DAILY DOSE 20 GU
     Dates: start: 20090216

REACTIONS (2)
  - BREAST CANCER [None]
  - BREAST CANCER FEMALE [None]
